FAERS Safety Report 4661091-6 (Version None)
Quarter: 2005Q2

REPORT INFORMATION
  Report Type: 
  Country: None (occurrence: None)
  Receive Date: 20050511
  Receipt Date: 20050502
  Transmission Date: 20051028
  Serious: Yes (Hospitalization, Other)
  Sender: FDA-Public Use
  Company Number: 2005069443

PATIENT
  Age: 75 Year
  Sex: Female

DRUGS (1)
  1. ZOLOFT [Suspect]
     Indication: ILL-DEFINED DISORDER
     Dosage: 50 MG
     Route: 048

REACTIONS (3)
  - CONFUSIONAL STATE [None]
  - CONVERSION DISORDER [None]
  - HYPONATRAEMIA [None]
